FAERS Safety Report 6480150-9 (Version None)
Quarter: 2009Q4

REPORT INFORMATION
  Report Type: 
  Country: None (occurrence: None)
  Receive Date: 20091208
  Receipt Date: 20091204
  Transmission Date: 20100525
  Serious: Yes (Death, Life-Threatening, Hospitalization, Disabling)
  Sender: FDA-Public Use
  Company Number: JP-JNJFOC-20090606374

PATIENT
  Sex: Female
  Weight: 35 kg

DRUGS (4)
  1. DOXORUBICIN HCL [Suspect]
     Indication: OVARIAN CANCER RECURRENT
     Dosage: CYCLE 1
     Route: 042
  2. DECADRON [Concomitant]
     Indication: PROPHYLAXIS
     Route: 042
  3. ISOTONIC SODIUM CHLORIDE [Concomitant]
     Indication: PROPHYLAXIS
     Route: 042
  4. GLUCOSE [Concomitant]
     Indication: PROPHYLAXIS
     Route: 042

REACTIONS (8)
  - ALANINE AMINOTRANSFERASE INCREASED [None]
  - ASPARTATE AMINOTRANSFERASE INCREASED [None]
  - BLOOD ALKALINE PHOSPHATASE INCREASED [None]
  - BLOOD BILIRUBIN INCREASED [None]
  - GAMMA-GLUTAMYLTRANSFERASE INCREASED [None]
  - NAUSEA [None]
  - OVARIAN CANCER [None]
  - VOMITING [None]
